FAERS Safety Report 8906811 (Version 2)
Quarter: 2012Q4

REPORT INFORMATION
  Report Type: 
  Country: GB (occurrence: GB)
  Receive Date: 20121114
  Receipt Date: 20121122
  Transmission Date: 20130627
  Serious: Yes (Death, Other)
  Sender: FDA-Public Use
  Company Number: GB-AMGEN-GBRSP2012071865

PATIENT
  Age: 1 Day
  Sex: Male
  Weight: .69 kg

DRUGS (8)
  1. ARANESP [Suspect]
     Dosage: 120 mug, qwk
     Route: 064
     Dates: start: 20120730
  2. VENOFER [Concomitant]
     Dosage: 100 mg, 2 times/wk
     Route: 064
     Dates: start: 20120903
  3. FRAGMIN [Concomitant]
     Indication: DIALYSIS
     Dosage: 5000 IU, qd
     Route: 064
     Dates: start: 20120716
  4. RENAGEL                            /01459901/ [Concomitant]
     Dosage: 800 mg, tid
     Route: 064
  5. FUROSEMIDE [Concomitant]
     Dosage: 20 mg, qd
     Route: 064
  6. LABETALOL [Concomitant]
     Dosage: 200 mg, bid
     Route: 064
  7. CLONAZEPAM [Concomitant]
     Dosage: 0.5 mg, qd
     Route: 064
  8. ALFACALCIDOL [Concomitant]
     Dosage: 1.25 mug, qd
     Route: 064
     Dates: start: 201201

REACTIONS (3)
  - Death neonatal [Fatal]
  - Premature baby [Fatal]
  - Low birth weight baby [Unknown]
